FAERS Safety Report 18457805 (Version 1)
Quarter: 2020Q4

REPORT INFORMATION
  Report Type: Spontaneous
  Country: LV (occurrence: LV)
  Receive Date: 20201103
  Receipt Date: 20201103
  Transmission Date: 20210114
  Serious: Yes (Hospitalization, Other)
  Sender: FDA-Public Use
  Company Number: LV-ABBVIE-20K-287-3628016-00

PATIENT
  Age: 32 Year
  Sex: Male

DRUGS (8)
  1. DOLUTEGRAVIR [Suspect]
     Active Substance: DOLUTEGRAVIR
     Dosage: UNK
     Route: 065
     Dates: start: 2018, end: 2019
  2. ABACAVIR SULPHATE + LAMIVUDINE [Suspect]
     Active Substance: ABACAVIR SULFATE\LAMIVUDINE
     Dosage: UNK
     Route: 065
     Dates: start: 2018, end: 2019
  3. ABACAVIR SULPHATE + LAMIVUDINE [Suspect]
     Active Substance: ABACAVIR SULFATE\LAMIVUDINE
     Indication: HIV INFECTION
     Dosage: UNK, ABACAVIR SULPHATE + LAMIVUDINE + DOLUTEGRAVIR
     Route: 065
     Dates: start: 2015
  4. MAVIRET [Suspect]
     Active Substance: GLECAPREVIR\PIBRENTASVIR
     Indication: HIV INFECTION
     Dosage: UNK
     Route: 048
  5. ABACAVIR SULFATE + LAMIVUDINE [Suspect]
     Active Substance: ABACAVIR SULFATE\LAMIVUDINE
     Indication: HIV INFECTION
     Dosage: UNK
     Route: 065
     Dates: start: 2015, end: 2018
  6. ATAZANAVIR + RITONAVIR [Suspect]
     Active Substance: ATAZANAVIR\RITONAVIR
     Indication: HIV INFECTION
     Dosage: UNK
     Route: 065
  7. RALTEGRAVIR. [Suspect]
     Active Substance: RALTEGRAVIR
     Indication: HIV INFECTION
     Dosage: UNK
     Route: 065
  8. DOLUTEGRAVIR [Suspect]
     Active Substance: DOLUTEGRAVIR
     Indication: HIV INFECTION
     Dosage: UNK, ABACAVIR SULPHATE + LAMIVUDINE + DOLUTEGRAVIR
     Route: 065
     Dates: start: 2015

REACTIONS (10)
  - Splenomegaly [Unknown]
  - Pancytopenia [Unknown]
  - Hypersplenism [Unknown]
  - Ascites [Unknown]
  - Portal hypertension [Unknown]
  - Treatment noncompliance [Unknown]
  - Hepatic failure [Unknown]
  - Hypercoagulation [Unknown]
  - Hepatic cirrhosis [Unknown]
  - Glomerular filtration rate decreased [Unknown]
